FAERS Safety Report 6144706-5 (Version None)
Quarter: 2009Q2

REPORT INFORMATION
  Report Type: 
  Country: None (occurrence: None)
  Receive Date: 20090406
  Receipt Date: 20090330
  Transmission Date: 20091009
  Serious: Yes (Hospitalization, Congenital Anomaly)
  Sender: FDA-Public Use
  Company Number: B0568316A

PATIENT
  Sex: Female

DRUGS (3)
  1. LAMOTRIGINE [Suspect]
  2. OXCARBAZEPINE [Suspect]
  3. CARBAMAZEPINE [Suspect]

REACTIONS (11)
  - ABNORMAL PALMAR/PLANTAR CREASES [None]
  - DRUG EXPOSURE DURING PREGNANCY [None]
  - DYSMORPHISM [None]
  - HYPERTELORISM OF ORBIT [None]
  - HYPOGLYCAEMIA [None]
  - HYPOPHAGIA [None]
  - JOINT CONTRACTURE [None]
  - LIMB HYPOPLASIA CONGENITAL [None]
  - LOW SET EARS [None]
  - MICROCEPHALY [None]
  - SMALL FOR DATES BABY [None]
